FAERS Safety Report 9662737 (Version 3)
Quarter: 2014Q2

REPORT INFORMATION
  Report Type: Spontaneous
  Country: US (occurrence: US)
  Receive Date: 20131031
  Receipt Date: 20140418
  Transmission Date: 20141212
  Serious: No
  Sender: FDA-Public Use
  Company Number: US-PURDUE-USA-2010-0049248

PATIENT
  Sex: Male

DRUGS (2)
  1. OXYCONTIN (NDA 22-272) [Suspect]
     Indication: BLADDER DISORDER
     Dosage: 40 MG, UNK
     Route: 048
     Dates: start: 2010
  2. OXYCONTIN (NDA 22-272) [Suspect]
     Dosage: 20 UNK, UNK
     Route: 048

REACTIONS (5)
  - Drug withdrawal syndrome [Not Recovered/Not Resolved]
  - Dysuria [Not Recovered/Not Resolved]
  - Drug effect decreased [Recovering/Resolving]
  - Drug ineffective [Unknown]
  - Therapeutic response delayed [Unknown]
